FAERS Safety Report 6436225-3 (Version None)
Quarter: 2009Q4

REPORT INFORMATION
  Report Type: 
  Country: None (occurrence: None)
  Receive Date: 20091111
  Receipt Date: 20091105
  Transmission Date: 20100525
  Serious: Yes (Death)
  Sender: FDA-Public Use
  Company Number: FR-ROCHE-667424

PATIENT
  Sex: Male

DRUGS (16)
  1. CAPECITABINE [Suspect]
     Indication: GASTRIC CANCER
     Dosage: FREQUENCY: CYCLIC.
     Route: 048
     Dates: start: 20080114
  2. IRINOTECAN HCL [Suspect]
     Indication: GASTRIC CANCER
     Route: 042
     Dates: start: 20070924, end: 20071227
  3. CISPLATIN [Suspect]
     Indication: GASTRIC CANCER
     Dosage: FREQUENCY: CYCLIC, POWDER FOR SOLUTION FOR INJECTION.
     Route: 042
     Dates: start: 20080114, end: 20080114
  4. EPIRUBICIN HCL [Suspect]
     Indication: GASTRIC CANCER
     Dosage: FREQUENCY: CYCLIC.
     Route: 042
     Dates: start: 20080114, end: 20080114
  5. FLUOROURACIL [Suspect]
     Indication: GASTRIC CANCER
     Dosage: SOLUTION FOR INJECTION, FREQUENCY: CYCLIC.
     Route: 042
     Dates: start: 20070924, end: 20071228
  6. ELVORINE [Suspect]
     Indication: GASTRIC CANCER
     Route: 042
     Dates: start: 20070924, end: 20071227
  7. OXYCONTIN [Concomitant]
  8. LASILIX [Concomitant]
     Dosage: TAKEN IN MORNING
  9. SERETIDE [Concomitant]
     Dosage: FORM: PUFFS, STRENGTH: 500G/50 G.
  10. ALLOPURINOL [Concomitant]
     Dosage: TAKEN IN MORNING.
  11. ISOPTIN [Concomitant]
     Dosage: TAKEN IN MORNING AND EVENING.
  12. SPIRIVA [Concomitant]
  13. TAMSULOSIN [Concomitant]
  14. INIPOMP [Concomitant]
  15. PHOSPHALUGEL [Concomitant]
  16. OXYNORM [Concomitant]
     Indication: PAIN
     Dosage: TAKEN AS NEEDED.

REACTIONS (1)
  - GENERAL PHYSICAL HEALTH DETERIORATION [None]
